FAERS Safety Report 9059776 (Version 1)
Quarter: 2013Q1

REPORT INFORMATION
  Report Type: Spontaneous
  Country: BR (occurrence: BR)
  Receive Date: 20130212
  Receipt Date: 20130212
  Transmission Date: 20140127
  Serious: Yes (Other)
  Sender: FDA-Public Use
  Company Number: BR-AMGEN-BRASP2013009144

PATIENT
  Age: 65 Year
  Sex: Female

DRUGS (3)
  1. ENBREL [Suspect]
     Indication: RHEUMATOID ARTHRITIS
     Dosage: 25 MG, 2X/WEEK
     Route: 058
     Dates: start: 200609
  2. DEFLAZACORT [Concomitant]
     Dosage: UNK
  3. PANTOPRAZOL [Concomitant]
     Dosage: UNK

REACTIONS (2)
  - Knee deformity [Unknown]
  - Foot deformity [Unknown]
